FAERS Safety Report 26067410 (Version 2)
Quarter: 2025Q4

REPORT INFORMATION
  Report Type: Spontaneous
  Country: GB (occurrence: GB)
  Receive Date: 20251120
  Receipt Date: 20251120
  Transmission Date: 20260117
  Serious: Yes (Other)
  Sender: ROCHE
  Company Number: GB-ROCHE-10000438048

PATIENT
  Age: 82 Year
  Sex: Male

DRUGS (5)
  1. RITUXIMAB [Suspect]
     Active Substance: RITUXIMAB
     Indication: Splenic marginal zone lymphoma
     Route: 042
  2. FEBUXOSTAT [Concomitant]
     Active Substance: FEBUXOSTAT
  3. FINASTERIDE [Concomitant]
     Active Substance: FINASTERIDE
  4. CHOLECALCIFEROL [Concomitant]
     Active Substance: CHOLECALCIFEROL
     Dosage: 800 UNITS
  5. TAMSULOSIN [Concomitant]
     Active Substance: TAMSULOSIN
     Dosage: 400 MCG

REACTIONS (1)
  - Acute coronary syndrome [Recovering/Resolving]
